FAERS Safety Report 11531194 (Version 2)
Quarter: 2015Q4

REPORT INFORMATION
  Report Type: Spontaneous
  Country: CA (occurrence: CA)
  Receive Date: 20150921
  Receipt Date: 20151215
  Transmission Date: 20160304
  Serious: Yes (Other)
  Sender: FDA-Public Use
  Company Number: CA-ROCHE-1635490

PATIENT
  Age: 75 Year
  Sex: Male

DRUGS (1)
  1. XOLAIR [Suspect]
     Active Substance: OMALIZUMAB
     Indication: ASTHMA
     Route: 058
     Dates: start: 20141203

REACTIONS (6)
  - Obstructive airways disorder [Unknown]
  - Cough [Unknown]
  - Forced expiratory volume decreased [Unknown]
  - Dyspnoea [Unknown]
  - Cardiac disorder [Unknown]
  - Palpitations [Unknown]

NARRATIVE: CASE EVENT DATE: 20150909
